FAERS Safety Report 4904357-4 (Version None)
Quarter: 2006Q1

REPORT INFORMATION
  Report Type: 
  Country: None (occurrence: None)
  Receive Date: 20060208
  Receipt Date: 20050825
  Transmission Date: 20060701
  Serious: No
  Sender: FDA-Public Use
  Company Number: US-GLAXOSMITHKLINE-A0571878A

PATIENT
  Age: 52 Year
  Sex: Female

DRUGS (3)
  1. PAXIL [Suspect]
     Dosage: 10MG PER DAY
     Route: 048
  2. BIRTH CONTROL PILLS [Concomitant]
  3. MULTI-VITAMIN [Concomitant]

REACTIONS (1)
  - HYPERTENSION [None]
